FAERS Safety Report 20709741 (Version 1)
Quarter: 2022Q2

REPORT INFORMATION
  Report Type: Other
  Country: US (occurrence: None)
  Receive Date: 20220414
  Receipt Date: 20220414
  Transmission Date: 20220721
  Serious: Yes (Other)
  Sender: FDA-Public Use
  Company Number: US-ROCHE-3068184

PATIENT
  Sex: Female
  Weight: 86.818 kg

DRUGS (6)
  1. OCREVUS [Suspect]
     Active Substance: OCRELIZUMAB
     Indication: Multiple sclerosis
     Dosage: 200 ML/HOUR INFUSION RATE
     Route: 042
     Dates: start: 20190418
  2. AUBAGIO [Concomitant]
     Active Substance: TERIFLUNOMIDE
  3. VITAMIN D3 [Concomitant]
     Active Substance: CHOLECALCIFEROL
     Dosage: 1 CAPSULE QD
  4. LORAZEPAM [Concomitant]
     Active Substance: LORAZEPAM
     Dates: start: 20200527
  5. BACLOFEN [Concomitant]
     Active Substance: BACLOFEN
     Dates: start: 20210129
  6. CYMBALTA [Concomitant]
     Active Substance: DULOXETINE HYDROCHLORIDE
     Dates: start: 20210914

REACTIONS (8)
  - Urinary tract infection [Unknown]
  - Hemiparesis [Unknown]
  - Headache [Unknown]
  - Aortic aneurysm [Unknown]
  - Chronic kidney disease [Unknown]
  - Hypercholesterolaemia [Unknown]
  - Hyperlipidaemia [Unknown]
  - Memory impairment [Unknown]
